FAERS Safety Report 15007097 (Version 1)
Quarter: 2018Q2

REPORT INFORMATION
  Report Type: Spontaneous
  Country: AU (occurrence: AU)
  Receive Date: 20180526
  Receipt Date: 20180526
  Transmission Date: 20180711
  Serious: Yes (Life-Threatening, Disabling, Other)
  Sender: FDA-Public Use
  Company Number: None

PATIENT
  Age: 24 Month
  Sex: Male

DRUGS (4)
  1. SINGULAIR [Suspect]
     Active Substance: MONTELUKAST SODIUM
     Indication: ASTHMA
     Dosage: ?          QUANTITY:1 DF DOSAGE FORM;?
     Route: 048
     Dates: start: 20071022, end: 20101022
  2. VENTOLIN [Concomitant]
     Active Substance: ALBUTEROL SULFATE
  3. CLARATINE [Concomitant]
  4. IRON SUPPLEMENT [Concomitant]
     Active Substance: IRON

REACTIONS (22)
  - Hallucination, auditory [None]
  - Tremor [None]
  - Obsessive-compulsive disorder [None]
  - Psychiatric symptom [None]
  - Epistaxis [None]
  - Sensory loss [None]
  - Hallucination, visual [None]
  - Nightmare [None]
  - Fear of disease [None]
  - Self esteem decreased [None]
  - Gait disturbance [None]
  - Suicidal ideation [None]
  - Anxiety [None]
  - Anger [None]
  - Pain in extremity [None]
  - Decreased appetite [None]
  - Headache [None]
  - Blood iron decreased [None]
  - Aggression [None]
  - Crying [None]
  - Visual impairment [None]
  - Suicide attempt [None]

NARRATIVE: CASE EVENT DATE: 20071022
